FAERS Safety Report 9516726 (Version 1)
Quarter: 2013Q3

REPORT INFORMATION
  Report Type: Spontaneous
  Country: US (occurrence: US)
  Receive Date: 20130911
  Receipt Date: 20130911
  Transmission Date: 20140515
  Serious: Yes (Hospitalization)
  Sender: FDA-Public Use
  Company Number: US-ELI_LILLY_AND_COMPANY-US201309001024

PATIENT
  Sex: Male

DRUGS (1)
  1. HUMALOG LISPRO [Suspect]

REACTIONS (2)
  - Peripheral arterial occlusive disease [Unknown]
  - Skin ulcer [Unknown]
